FAERS Safety Report 25660993 (Version 1)
Quarter: 2025Q3

REPORT INFORMATION
  Report Type: Spontaneous
  Country: UA (occurrence: UA)
  Receive Date: 20250808
  Receipt Date: 20250808
  Transmission Date: 20251021
  Serious: Yes (Other)
  Sender: DR REDDYS
  Company Number: UA-RDY-UKR/2025/07/011768

PATIENT
  Age: 45 Year
  Sex: Male

DRUGS (3)
  1. PREGABALIN [Suspect]
     Active Substance: PREGABALIN
     Indication: Pain
  2. CARBAMAZEPINE [Suspect]
     Active Substance: CARBAMAZEPINE
     Indication: Pain
  3. GABAPENTIN [Suspect]
     Active Substance: GABAPENTIN
     Indication: Pain

REACTIONS (2)
  - Dermatitis allergic [Unknown]
  - Drug ineffective [Unknown]
